FAERS Safety Report 10149316 (Version 2)
Quarter: 2014Q2

REPORT INFORMATION
  Report Type: Spontaneous
  Country: US (occurrence: None)
  Receive Date: 20140501
  Receipt Date: 20140501
  Transmission Date: 20141212
  Serious: Yes (Other)
  Sender: FDA-Public Use
  Company Number: AUR-APL-2014-05162

PATIENT
  Sex: Male
  Weight: 116 kg

DRUGS (8)
  1. METFORMIN [Suspect]
     Indication: DIABETES MELLITUS
  2. LOSARTAN [Suspect]
     Indication: HYPERTENSION
  3. TAMSULOSIN [Suspect]
     Indication: BENIGN PROSTATIC HYPERPLASIA
     Dosage: 0.4 MG 2 IN 1 D
  4. NARDIL [Suspect]
     Indication: DEPRESSION
  5. VIAGRA [Suspect]
     Indication: ERECTILE DYSFUNCTION
  6. PROCARDIA [Suspect]
     Indication: HYPERLIPIDAEMIA
  7. LEVOTHYROXINE SODIUM [Suspect]
     Indication: HYPOTHYROIDISM
  8. GLIPIZIDE [Suspect]
     Indication: DIABETES MELLITUS
     Dosage: 10 MG 2 IN 1 D

REACTIONS (1)
  - Colon cancer [None]
